FAERS Safety Report 7668084-5 (Version None)
Quarter: 2011Q3

REPORT INFORMATION
  Report Type: 
  Country: None (occurrence: None)
  Receive Date: 20110808
  Receipt Date: 20110803
  Transmission Date: 20111222
  Serious: Yes (Other)
  Sender: FDA-Public Use
  Company Number: US-PFIZER INC-2005088600

PATIENT
  Sex: Female
  Weight: 52.154 kg

DRUGS (10)
  1. VFEND [Suspect]
     Dosage: UNK
     Route: 048
     Dates: start: 20080101, end: 20080101
  2. DRUG, UNSPECIFIED [Concomitant]
     Route: 065
  3. BENADRYL [Concomitant]
  4. SYNTHROID [Concomitant]
     Indication: HYPOTHYROIDISM
     Dosage: 25 UG DAILY
  5. ATAVIN [Concomitant]
  6. VFEND [Suspect]
     Indication: VULVOVAGINAL MYCOTIC INFECTION
     Route: 048
     Dates: start: 20050501, end: 20050501
  7. VFEND [Suspect]
     Dosage: UNK
     Route: 048
     Dates: start: 20050801
  8. ESTROGENS, COMBINATIONS WITH OTHER DRUGS [Concomitant]
     Route: 065
  9. CLARITIN [Concomitant]
  10. THYROID [Concomitant]
     Indication: HYPOTHYROIDISM
     Dosage: 23.5 MG DAILY

REACTIONS (11)
  - CHEST DISCOMFORT [None]
  - FATIGUE [None]
  - VULVOVAGINAL MYCOTIC INFECTION [None]
  - PALPITATIONS [None]
  - ANXIETY [None]
  - DRUG INEFFECTIVE [None]
  - HEART RATE INCREASED [None]
  - NERVOUSNESS [None]
  - RASH [None]
  - INSOMNIA [None]
  - LETHARGY [None]
